FAERS Safety Report 8085900-6 (Version None)
Quarter: 2012Q1

REPORT INFORMATION
  Report Type: 
  Country: None (occurrence: None)
  Receive Date: 20120128
  Receipt Date: 20110504
  Transmission Date: 20120608
  Serious: No
  Sender: FDA-Public Use
  Company Number: US-ABBOTT-11P-163-0723442-00

PATIENT
  Sex: Female
  Weight: 95.34 kg

DRUGS (3)
  1. HUMIRA [Suspect]
     Indication: PSORIASIS
     Dates: start: 20110503
  2. IBUPROFEN [Concomitant]
     Indication: PAIN
  3. SUDAFED 12 HOUR [Concomitant]
     Indication: SINUS HEADACHE

REACTIONS (1)
  - INJECTION SITE PAIN [None]
